FAERS Safety Report 7234244-0 (Version None)
Quarter: 2011Q1

REPORT INFORMATION
  Report Type: 
  Country: None (occurrence: None)
  Receive Date: 20110119
  Receipt Date: 20110110
  Transmission Date: 20110831
  Serious: Yes (Other)
  Sender: FDA-Public Use
  Company Number: PHHY2010US64379

PATIENT
  Sex: Female
  Weight: 77.098 kg

DRUGS (1)
  1. NEORAL [Suspect]
     Dosage: 100 MG AM AND 75 MG PM
     Route: 048
     Dates: start: 19980101

REACTIONS (3)
  - FALL [None]
  - UPPER LIMB FRACTURE [None]
  - JOINT DISLOCATION [None]
